FAERS Safety Report 5445317-7 (Version None)
Quarter: 2007Q3

REPORT INFORMATION
  Report Type: 
  Country: None (occurrence: None)
  Receive Date: 20070906
  Receipt Date: 20070426
  Transmission Date: 20080115
  Serious: No
  Sender: FDA-Public Use
  Company Number: A0648888A

PATIENT
  Age: 57 Year
  Sex: Female

DRUGS (5)
  1. REQUIP [Suspect]
     Indication: RESTLESS LEGS SYNDROME
     Dosage: 3MG AT NIGHT
     Route: 048
     Dates: start: 20060401
  2. WELLBUTRIN [Concomitant]
  3. PRILOSEC [Concomitant]
  4. BENADRYL [Concomitant]
  5. LASIX [Concomitant]

REACTIONS (1)
  - WEIGHT INCREASED [None]
